FAERS Safety Report 13390698 (Version 1)
Quarter: 2017Q1

REPORT INFORMATION
  Report Type: Spontaneous
  Country: US (occurrence: US)
  Receive Date: 20170330
  Receipt Date: 20170330
  Transmission Date: 20170429
  Serious: Yes (Hospitalization)
  Sender: FDA-Public Use
  Company Number: None

PATIENT
  Age: 57 Year
  Sex: Female

DRUGS (1)
  1. LETAIRIS [Suspect]
     Active Substance: AMBRISENTAN
     Indication: PULMONARY ARTERIAL HYPERTENSION
     Route: 048
     Dates: start: 20170303

REACTIONS (10)
  - White blood cell count increased [None]
  - Influenza like illness [None]
  - Septic shock [None]
  - International normalised ratio increased [None]
  - Decreased appetite [None]
  - Hepatic enzyme abnormal [None]
  - Asthenia [None]
  - Pyrexia [None]
  - Refusal of treatment by patient [None]
  - Coagulopathy [None]

NARRATIVE: CASE EVENT DATE: 20170306
